FAERS Safety Report 9071983 (Version 1)
Quarter: 2013Q1

REPORT INFORMATION
  Report Type: Spontaneous
  Country: US (occurrence: US)
  Receive Date: 20130206
  Receipt Date: 20130206
  Transmission Date: 20140127
  Serious: No
  Sender: FDA-Public Use
  Company Number: US-ALLERGAN-1214930US

PATIENT
  Sex: Female

DRUGS (8)
  1. RESTASIS? [Suspect]
     Indication: DRY EYE
     Dosage: 2 GTT, BID
     Route: 047
     Dates: start: 201210
  2. WARFARIN [Concomitant]
     Indication: THROMBOSIS
     Dosage: UNK UNK, QD
     Route: 048
  3. NEXUM [Concomitant]
     Indication: GASTROOESOPHAGEAL REFLUX DISEASE
     Dosage: UNK UNK, QD
     Route: 048
  4. IRON [Concomitant]
     Indication: ANAEMIA
     Dosage: UNK UNK, QD
     Route: 048
  5. VITAMIN D /00107901/ [Concomitant]
     Indication: VITAMIN D DEFICIENCY
     Dosage: UNK UNK, QD
     Route: 048
  6. RASPBERRY KETONES [Concomitant]
     Indication: WEIGHT DECREASED
     Dosage: UNK UNK, QD
     Route: 048
  7. VITAMIN SUPPLEMENTS [Concomitant]
     Indication: SUPPLEMENTATION THERAPY
     Dosage: UNK UNK, QD
     Route: 048
  8. REFRESH TEARS [Concomitant]
     Indication: EYE LUBRICATION THERAPY
     Dosage: 2 GTT, PRN
     Route: 047

REACTIONS (1)
  - Scleral hyperaemia [Recovered/Resolved]
